FAERS Safety Report 9849800 (Version 1)
Quarter: 2014Q1

REPORT INFORMATION
  Report Type: Spontaneous
  Country: FR (occurrence: None)
  Receive Date: 20140124
  Receipt Date: 20140124
  Transmission Date: 20141002
  Serious: Yes (Hospitalization, Other)
  Sender: FDA-Public Use
  Company Number: AUR-APL-2014-00415

PATIENT
  Age: 83 Year
  Sex: Female

DRUGS (6)
  1. RAMIPRIL (RAMIPRIL) [Suspect]
     Indication: PRODUCT USED FOR UNKNOWN INDICATION
     Dates: start: 201308, end: 20131029
  2. TOPLEXIL [Suspect]
     Indication: RESPIRATORY TRACT INFECTION
     Dates: start: 20131013, end: 20131029
  3. JOSACINE [Suspect]
     Indication: RESPIRATORY TRACT INFECTION
     Dates: start: 20131013, end: 20131029
  4. HELICIDINE [Suspect]
     Indication: RESPIRATORY TRACT INFECTION
     Dates: start: 20131013, end: 20131029
  5. FLECAINE (FLECAINIDE ACETATE) [Concomitant]
  6. MEDIATENSYL (URAPIDIL) [Concomitant]

REACTIONS (6)
  - Angioedema [None]
  - Epistaxis [None]
  - Respiratory disorder [None]
  - Macroglossia [None]
  - Localised oedema [None]
  - Speech disorder [None]
